FAERS Safety Report 5857674-8 (Version None)
Quarter: 2008Q3

REPORT INFORMATION
  Report Type: 
  Country: None (occurrence: None)
  Receive Date: 20080826
  Receipt Date: 20080821
  Transmission Date: 20090109
  Serious: Yes (Hospitalization, Other)
  Sender: FDA-Public Use
  Company Number: JP-WYE-H05664908

PATIENT
  Sex: Male

DRUGS (5)
  1. HYPEN [Suspect]
     Indication: PAIN
     Route: 048
     Dates: start: 20080227, end: 20080312
  2. LORNOXICAM [Concomitant]
     Dosage: UNKNOWN
     Route: 048
     Dates: start: 20080216, end: 20080226
  3. LORNOXICAM [Concomitant]
     Dosage: UNKNOWN
     Dates: start: 20080227
  4. TEPRENONE [Concomitant]
     Dosage: UNKNOWN
     Route: 048
     Dates: start: 20080227
  5. SOFALCONE [Concomitant]
     Dosage: UNKNOWN
     Route: 048
     Dates: start: 20080227

REACTIONS (1)
  - ALVEOLITIS ALLERGIC [None]
